FAERS Safety Report 9300312 (Version 2)
Quarter: 2013Q3

REPORT INFORMATION
  Report Type: Spontaneous
  Country: US (occurrence: US)
  Receive Date: 20130521
  Receipt Date: 20130701
  Transmission Date: 20140515
  Serious: Yes (Hospitalization, Other)
  Sender: FDA-Public Use
  Company Number: US-JNJFOC-20130507859

PATIENT
  Age: 33 Year
  Sex: Female
  Weight: 83.92 kg

DRUGS (8)
  1. REMICADE [Suspect]
     Indication: PRODUCT USED FOR UNKNOWN INDICATION
     Route: 042
     Dates: start: 2011, end: 201203
  2. HUMIRA [Suspect]
     Indication: CROHN^S DISEASE
     Route: 065
     Dates: start: 2011
  3. HUMIRA [Suspect]
     Indication: CROHN^S DISEASE
     Route: 065
     Dates: start: 2010, end: 2011
  4. DEPAKOTE [Suspect]
     Indication: CONVULSION
     Route: 065
  5. GABAPENTIN [Concomitant]
     Indication: CONVULSION
     Route: 065
  6. TOPAMAX [Concomitant]
     Indication: CONVULSION
     Route: 065
  7. OXYCODONE [Concomitant]
     Indication: FIBROMYALGIA
     Route: 065
  8. VITAMIN [Concomitant]
     Indication: MALABSORPTION
     Route: 065

REACTIONS (11)
  - Convulsion [Unknown]
  - Dehydration [Unknown]
  - Crohn^s disease [Recovered/Resolved]
  - Lupus-like syndrome [Unknown]
  - Joint swelling [Unknown]
  - Anxiety [Unknown]
  - Panic attack [Unknown]
  - Hypersensitivity [Unknown]
  - Gait disturbance [Unknown]
  - Arthralgia [Unknown]
  - Drug effect incomplete [Unknown]
